FAERS Safety Report 8395575-4 (Version None)
Quarter: 2012Q2

REPORT INFORMATION
  Report Type: 
  Country: None (occurrence: None)
  Receive Date: 20120530
  Receipt Date: 20110914
  Transmission Date: 20120825
  Serious: No
  Sender: FDA-Public Use
  Company Number: US-GLAXOSMITHKLINE-A0944610A

PATIENT
  Age: 67 Year
  Sex: Male

DRUGS (2)
  1. VENTOLIN [Suspect]
     Route: 055
  2. NEBULIZER [Concomitant]

REACTIONS (2)
  - DRUG INEFFECTIVE [None]
  - DRUG ADMINISTRATION ERROR [None]
